FAERS Safety Report 6170467-X (Version None)
Quarter: 2009Q2

REPORT INFORMATION
  Report Type: 
  Country: None (occurrence: None)
  Receive Date: 20090428
  Receipt Date: 20090417
  Transmission Date: 20091009
  Serious: Yes (Other)
  Sender: FDA-Public Use
  Company Number: US-PFIZER INC-2008094624

PATIENT
  Sex: Male
  Weight: 74.376 kg

DRUGS (3)
  1. TIKOSYN [Suspect]
     Indication: ATRIAL FIBRILLATION
     Dates: start: 20081016
  2. METOPROLOL [Concomitant]
  3. ENALAPRIL [Concomitant]

REACTIONS (3)
  - CARDIAC PACEMAKER INSERTION [None]
  - POLYURIA [None]
  - THIRST [None]
